FAERS Safety Report 11497820 (Version 1)
Quarter: 2015Q3

REPORT INFORMATION
  Report Type: Spontaneous
  Country: US (occurrence: US)
  Receive Date: 20150911
  Receipt Date: 20150911
  Transmission Date: 20151125
  Serious: No
  Sender: FDA-Public Use
  Company Number: US-ENDO PHARMACEUTICALS INC.-2015-002698

PATIENT
  Sex: Female

DRUGS (1)
  1. TEMAZEPAM CAPSULE [Suspect]
     Active Substance: TEMAZEPAM
     Indication: INSOMNIA
     Route: 048

REACTIONS (1)
  - Drug ineffective [Not Recovered/Not Resolved]
